FAERS Safety Report 20982919 (Version 2)
Quarter: 2022Q3

REPORT INFORMATION
  Report Type: Spontaneous
  Country: DE (occurrence: DE)
  Receive Date: 20220620
  Receipt Date: 20220705
  Transmission Date: 20221027
  Serious: Yes (Hospitalization)
  Sender: FDA-Public Use
  Company Number: DE-BAYER-2022A085804

PATIENT
  Age: 15 Year
  Sex: Female

DRUGS (2)
  1. VITRAKVI [Suspect]
     Active Substance: LAROTRECTINIB
     Indication: Glioneuronal tumour
     Dosage: 100 MG, BID (APPROXIMATELY 2,9 MG/KG/D)
     Dates: start: 202101
  2. VITRAKVI [Suspect]
     Active Substance: LAROTRECTINIB
     Indication: Metastasis

REACTIONS (3)
  - COVID-19 [Recovered/Resolved with Sequelae]
  - Gastroenteritis norovirus [Recovered/Resolved]
  - Acute kidney injury [Recovered/Resolved]

NARRATIVE: CASE EVENT DATE: 20210410
